FAERS Safety Report 17826355 (Version 2)
Quarter: 2020Q2

REPORT INFORMATION
  Report Type: Report from Study
  Country: US (occurrence: US)
  Receive Date: 20200526
  Receipt Date: 20200625
  Transmission Date: 20200714
  Serious: Yes (Hospitalization)
  Sender: FDA-Public Use
  Company Number: US-BRISTOL-MYERS SQUIBB COMPANY-BMS-2020-039505

PATIENT
  Age: 76 Year
  Sex: Male
  Weight: 64.13 kg

DRUGS (8)
  1. OXYCODONE [Concomitant]
     Active Substance: OXYCODONE
     Indication: PRODUCT USED FOR UNKNOWN INDICATION
     Dosage: 10 MILLIGRAM, Q4H
     Route: 065
     Dates: start: 20200211
  2. PREDNISONE [PREDNISONE ACETATE] [Concomitant]
     Active Substance: PREDNISONE ACETATE
     Indication: PRODUCT USED FOR UNKNOWN INDICATION
     Dosage: 5 MILLIGRAM, BID
     Route: 065
     Dates: start: 20200226
  3. IPILIMUMAB [Suspect]
     Active Substance: IPILIMUMAB
     Indication: PROSTATE CANCER
     Dosage: 3 MILLIGRAM/KILOGRAM
     Route: 042
     Dates: start: 20200325, end: 20200507
  4. LORAZEPAM. [Concomitant]
     Active Substance: LORAZEPAM
     Indication: PRODUCT USED FOR UNKNOWN INDICATION
     Dosage: 0.5 MILLIGRAM, Q4H
     Route: 065
     Dates: start: 20191026
  5. FENTANYL TRANSDERMAL SYSTEM [Concomitant]
     Active Substance: FENTANYL
     Indication: PRODUCT USED FOR UNKNOWN INDICATION
     Dosage: 100 MILLIGRAM Q72H
     Route: 065
     Dates: start: 20200211
  6. LUPRON [Concomitant]
     Active Substance: LEUPROLIDE ACETATE
     Indication: PRODUCT USED FOR UNKNOWN INDICATION
     Dosage: 22.5 MILLIGRAM, Q3MO
     Route: 065
     Dates: start: 20150728
  7. NIVOLUMAB [Suspect]
     Active Substance: NIVOLUMAB
     Indication: PROSTATE CANCER
     Dosage: 1 MILLIGRAM/KILOGRAM
     Route: 042
     Dates: start: 20200325, end: 20200507
  8. COMPAZINE [Concomitant]
     Active Substance: PROCHLORPERAZINE MALEATE
     Indication: PRODUCT USED FOR UNKNOWN INDICATION
     Dosage: UNK
     Route: 065
     Dates: start: 20200319

REACTIONS (1)
  - Temporal arteritis [Recovering/Resolving]

NARRATIVE: CASE EVENT DATE: 20200515
